FAERS Safety Report 17566966 (Version 1)
Quarter: 2020Q1

REPORT INFORMATION
  Report Type: Spontaneous
  Country: CN (occurrence: CN)
  Receive Date: 20200320
  Receipt Date: 20200320
  Transmission Date: 20200409
  Serious: Yes (Other)
  Sender: FDA-Public Use
  Company Number: NVSC2020CN080096

PATIENT
  Age: 62 Year
  Sex: Male

DRUGS (1)
  1. IMATINIB. [Suspect]
     Active Substance: IMATINIB MESYLATE
     Indication: CHOLANGIOCARCINOMA
     Dosage: 800 MG, QD (6 CYCLE)
     Route: 065

REACTIONS (3)
  - Therapy partial responder [Unknown]
  - Liver injury [Unknown]
  - Product use in unapproved indication [Unknown]
